FAERS Safety Report 7484083-0 (Version None)
Quarter: 2011Q2

REPORT INFORMATION
  Report Type: 
  Country: None (occurrence: None)
  Receive Date: 20110509
  Receipt Date: 20110427
  Transmission Date: 20111010
  Serious: Yes (Hospitalization)
  Sender: FDA-Public Use
  Company Number: 905475

PATIENT
  Age: 21 Year
  Sex: Female

DRUGS (6)
  1. CEFAZOLIN [Concomitant]
  2. THIOPENTAL SODIUM [Suspect]
     Indication: INDUCTION OF ANAESTHESIA
     Dosage: 3 MG/KG
  3. DESFLURANE [Suspect]
     Indication: MAINTENANCE OF ANAESTHESIA
     Dosage: AT LEAST 1 MINIMUM ALVEOLAR CONCENTRATION,
  4. SODIUM CITRATE [Concomitant]
  5. ROCURONIUM BROMIDE [Suspect]
     Indication: INDUCTION OF ANAESTHESIA
     Dosage: A SINGLE DOSE OF 0.5 MG/KG
  6. SYNTOCINON [Concomitant]

REACTIONS (6)
  - ATELECTASIS [None]
  - CAESAREAN SECTION [None]
  - RESPIRATORY DISORDER [None]
  - DRUG EXPOSURE DURING PREGNANCY [None]
  - PREMATURE RUPTURE OF MEMBRANES [None]
  - ANAESTHETIC COMPLICATION PULMONARY [None]
